FAERS Safety Report 9303073 (Version 1)
Quarter: 2013Q2

REPORT INFORMATION
  Report Type: Spontaneous
  Country: US (occurrence: None)
  Receive Date: 20130521
  Receipt Date: 20130521
  Transmission Date: 20140414
  Serious: Yes (Death)
  Sender: FDA-Public Use
  Company Number: None

PATIENT
  Age: 62 Year
  Sex: Male

DRUGS (2)
  1. REVLIMID 10MG CELGENE [Suspect]
     Indication: PLASMA CELL MYELOMA
     Dosage: 15MG(10MG+5MG DAILY) ORAL
     Route: 048
     Dates: start: 20130404, end: 20130501
  2. REVLIMID [Suspect]

REACTIONS (1)
  - Death [None]
